FAERS Safety Report 6528331-X (Version None)
Quarter: 2010Q1

REPORT INFORMATION
  Report Type: 
  Country: None (occurrence: None)
  Receive Date: 20100106
  Receipt Date: 20091227
  Transmission Date: 20100710
  Serious: Yes (Other)
  Sender: FDA-Public Use
  Company Number: PHHY2008US22680

PATIENT
  Age: 77 Year
  Sex: Female

DRUGS (1)
  1. RECLAST [Suspect]
     Indication: OSTEOPOROSIS
     Dosage: UNK
     Dates: start: 20080417

REACTIONS (7)
  - BONE GRAFT [None]
  - HORMONE LEVEL ABNORMAL [None]
  - HOT FLUSH [None]
  - HYPERHIDROSIS [None]
  - PERIODONTAL DISEASE [None]
  - PERIODONTAL OPERATION [None]
  - TOOTH DISORDER [None]
